FAERS Safety Report 10910417 (Version 1)
Quarter: 2015Q1

REPORT INFORMATION
  Report Type: Spontaneous
  Country: US (occurrence: US)
  Receive Date: 20150312
  Receipt Date: 20150312
  Transmission Date: 20150721
  Serious: No
  Sender: FDA-Public Use
  Company Number: US-SA-2014SA166697

PATIENT
  Age: 59 Year
  Sex: Female

DRUGS (1)
  1. NASACORT ALLERGY 24HR [Suspect]
     Active Substance: TRIAMCINOLONE ACETONIDE
     Dosage: PRODUCT START DATE: YEARS BACK?DOSAGE: 2 SPRAYS EACH NARES
     Route: 045

REACTIONS (3)
  - Upper respiratory tract congestion [Not Recovered/Not Resolved]
  - Feeling abnormal [Not Recovered/Not Resolved]
  - Chills [Not Recovered/Not Resolved]
